FAERS Safety Report 17748284 (Version 6)
Quarter: 2020Q3

REPORT INFORMATION
  Report Type: Spontaneous
  Country: US (occurrence: US)
  Receive Date: 20200505
  Receipt Date: 20200831
  Transmission Date: 20201102
  Serious: Yes (Other)
  Sender: FDA-Public Use
  Company Number: US-ROCHE-2420398

PATIENT
  Age: 71 Year
  Sex: Male
  Weight: 74.91 kg

DRUGS (32)
  1. ESBRIET [Suspect]
     Active Substance: PIRFENIDONE
     Dosage: THREE PILLS, THREE TIMES A DAY WITH MEAL
     Route: 048
     Dates: start: 20190813
  2. ESBRIET [Suspect]
     Active Substance: PIRFENIDONE
     Dosage: WITH MEALS
     Route: 048
  3. ATORVASTATIN CALCIUM. [Concomitant]
     Active Substance: ATORVASTATIN CALCIUM
  4. MULTIVITAMIN IRON [Concomitant]
  5. ESBRIET [Suspect]
     Active Substance: PIRFENIDONE
     Indication: IDIOPATHIC PULMONARY FIBROSIS
     Dosage: 3 CAPSULES BY MOUTH THREE TIMES A DAY
     Route: 048
  6. ESBRIET [Suspect]
     Active Substance: PIRFENIDONE
     Dosage: THREE CAPSULES, THRICE DAILY
     Route: 048
     Dates: start: 20190809
  7. ASPIRIN 81 [Concomitant]
     Active Substance: ASPIRIN
  8. BUSPIRONE HYDROCHLORIDE. [Concomitant]
     Active Substance: BUSPIRONE HYDROCHLORIDE
  9. ESBRIET [Suspect]
     Active Substance: PIRFENIDONE
     Indication: PULMONARY FIBROSIS
     Dosage: 1 CAPSULE THEN 2 CAPSULES AND 3 CAPSULES WITH MEAL
     Route: 048
     Dates: start: 20190508
  10. ESBRIET [Suspect]
     Active Substance: PIRFENIDONE
     Dosage: FOR ONE WEEK
     Route: 048
     Dates: start: 20190815
  11. CLONAZEPAM. [Concomitant]
     Active Substance: CLONAZEPAM
  12. FLUTICASONE PROPIONATE. [Concomitant]
     Active Substance: FLUTICASONE PROPIONATE
  13. METHYLPHENIDATE HYDROCHLORIDE. [Concomitant]
     Active Substance: METHYLPHENIDATE HYDROCHLORIDE
  14. TIMOLOL MALEATE. [Concomitant]
     Active Substance: TIMOLOL MALEATE
  15. CEFDINIR. [Concomitant]
     Active Substance: CEFDINIR
  16. ESBRIET [Suspect]
     Active Substance: PIRFENIDONE
     Dosage: 3 CAPSULES BY MOUTH THREE TIMES A DAY
     Route: 048
     Dates: start: 201912
  17. ESBRIET [Suspect]
     Active Substance: PIRFENIDONE
     Dosage: 3 PILLS 3 TIMES A DAY
     Route: 048
     Dates: start: 20190815
  18. TIMOLOL. [Concomitant]
     Active Substance: TIMOLOL
     Dosage: 1 DROP IN EACH EYE TWICE A DAY
     Route: 047
  19. FISH OIL [Concomitant]
     Active Substance: FISH OIL
  20. PREDNISONE. [Concomitant]
     Active Substance: PREDNISONE
  21. PREDNISONE. [Concomitant]
     Active Substance: PREDNISONE
     Route: 048
  22. TYLENOL [Concomitant]
     Active Substance: ACETAMINOPHEN
  23. IRON [Concomitant]
     Active Substance: IRON
  24. ESBRIET [Suspect]
     Active Substance: PIRFENIDONE
     Dosage: 1 CAPSULE TWICE A DAY FOR 1 WEEK
     Route: 048
     Dates: start: 20191231
  25. GABAPENTIN. [Concomitant]
     Active Substance: GABAPENTIN
  26. ESBRIET [Suspect]
     Active Substance: PIRFENIDONE
     Route: 048
     Dates: start: 20200722
  27. ESBRIET [Suspect]
     Active Substance: PIRFENIDONE
     Dosage: TAKE THREE CAPSULES, THREE TIMES ADAY WITH MEALS
     Route: 048
  28. ESBRIET [Suspect]
     Active Substance: PIRFENIDONE
     Dosage: FOR ONE WEEK
     Route: 048
     Dates: start: 20190815
  29. AUGMENTIN [Suspect]
     Active Substance: AMOXICILLIN\CLAVULANATE POTASSIUM
     Indication: URINARY TRACT INFECTION
     Route: 048
     Dates: start: 202007, end: 202007
  30. ROCKLATAN [Concomitant]
     Active Substance: LATANOPROST\NETARSUDIL MESYLATE
  31. ESBRIET [Suspect]
     Active Substance: PIRFENIDONE
     Dosage: TWO CAPSULES, TWICE DAILY
     Route: 048
     Dates: start: 20200730
  32. ESBRIET [Suspect]
     Active Substance: PIRFENIDONE
     Dosage: FOR ONE WEEK
     Route: 048
     Dates: start: 20190815

REACTIONS (23)
  - Faeces pale [Not Recovered/Not Resolved]
  - Blood urine present [Recovered/Resolved]
  - Procedural pain [Not Recovered/Not Resolved]
  - Intentional product use issue [Unknown]
  - Faeces pale [Not Recovered/Not Resolved]
  - Cough [Not Recovered/Not Resolved]
  - Urinary tract infection [Recovering/Resolving]
  - Faeces pale [Not Recovered/Not Resolved]
  - Depression [Not Recovered/Not Resolved]
  - Feeding disorder [Not Recovered/Not Resolved]
  - Hypersomnia [Not Recovered/Not Resolved]
  - Nausea [Not Recovered/Not Resolved]
  - Weight decreased [Not Recovered/Not Resolved]
  - Hypophagia [Not Recovered/Not Resolved]
  - Fatigue [Not Recovered/Not Resolved]
  - Decreased appetite [Not Recovered/Not Resolved]
  - Dyspnoea exertional [Not Recovered/Not Resolved]
  - Bladder dilatation [Not Recovered/Not Resolved]
  - Diarrhoea [Recovered/Resolved]
  - Decreased appetite [Recovered/Resolved]
  - Faeces discoloured [Unknown]
  - Malaise [Not Recovered/Not Resolved]
  - Upper respiratory tract congestion [Not Recovered/Not Resolved]

NARRATIVE: CASE EVENT DATE: 20191128
